FAERS Safety Report 21179551 (Version 1)
Quarter: 2022Q3

REPORT INFORMATION
  Report Type: Spontaneous
  Country: US (occurrence: None)
  Receive Date: 20220805
  Receipt Date: 20220805
  Transmission Date: 20221027
  Serious: Yes (Death)
  Sender: FDA-Public Use
  Company Number: None

PATIENT
  Age: 73 Year
  Sex: Male
  Weight: 69.31 kg

DRUGS (24)
  1. CAPECITABINE [Suspect]
     Active Substance: CAPECITABINE
     Indication: Pancreatic carcinoma
     Dosage: FREQUENCY : TWICE A DAY;?
     Route: 048
  2. ACETAMINOPHEN [Concomitant]
     Active Substance: ACETAMINOPHEN
  3. AMLODIPINE [Concomitant]
     Active Substance: AMLODIPINE BESYLATE
  4. CYCLOBENZAPRINE [Concomitant]
     Active Substance: CYCLOBENZAPRINE
  5. DOCUSATE [Concomitant]
     Active Substance: DOCUSATE
  6. FAMOTIDINE [Concomitant]
     Active Substance: FAMOTIDINE
  7. FUROSEMIDE [Concomitant]
     Active Substance: FUROSEMIDE
  8. HUMALOG [Concomitant]
     Active Substance: INSULIN LISPRO
  9. HUMULIN NOS [Concomitant]
     Active Substance: INSULIN HUMAN
  10. HYDROXYCHLOROQUINE [Concomitant]
     Active Substance: HYDROXYCHLOROQUINE
  11. LOSARTAN [Concomitant]
     Active Substance: LOSARTAN
  12. MESTINON [Concomitant]
     Active Substance: PYRIDOSTIGMINE BROMIDE
  13. METFORMIN [Concomitant]
     Active Substance: METFORMIN HYDROCHLORIDE
  14. METHYLPREDNISOLONE [Concomitant]
     Active Substance: METHYLPREDNISOLONE
  15. VITAMINS [Concomitant]
     Active Substance: VITAMINS
  16. PANTOPRAZOLE [Concomitant]
     Active Substance: PANTOPRAZOLE
  17. PEPCID [Concomitant]
     Active Substance: FAMOTIDINE
  18. PREDNISONE [Concomitant]
     Active Substance: PREDNISONE
  19. QUETIAPINE [Concomitant]
     Active Substance: QUETIAPINE
  20. SPIRONOLACTONE [Concomitant]
     Active Substance: SPIRONOLACTONE
  21. VITAMIN B12 ER [Concomitant]
  22. VITAMIN C [Concomitant]
     Active Substance: ASCORBIC ACID
  23. VITAMIN D [Concomitant]
     Active Substance: VITAMIN D NOS
  24. XARELTO [Concomitant]
     Active Substance: RIVAROXABAN

REACTIONS (1)
  - Death [None]
